FAERS Safety Report 9472675 (Version 1)
Quarter: 2013Q3

REPORT INFORMATION
  Report Type: Spontaneous
  Country: JP (occurrence: JP)
  Receive Date: 20130823
  Receipt Date: 20130823
  Transmission Date: 20140515
  Serious: Yes (Hospitalization)
  Sender: FDA-Public Use
  Company Number: JP-PFIZER INC-2013241913

PATIENT
  Age: 70 Year
  Sex: Male

DRUGS (5)
  1. JZOLOFT [Suspect]
     Indication: DEPRESSION
     Dosage: UNK
  2. JZOLOFT [Suspect]
     Dosage: 75 MG/DAY
  3. JZOLOFT [Suspect]
     Dosage: 50 MG/DAY
  4. JZOLOFT [Suspect]
     Dosage: 75 MG/DAY
  5. TRAZODONE [Concomitant]
     Dosage: UNK

REACTIONS (1)
  - Parkinsonism [Recovering/Resolving]
